FAERS Safety Report 6986645-3 (Version None)
Quarter: 2010Q3

REPORT INFORMATION
  Report Type: 
  Country: None (occurrence: None)
  Receive Date: 20100915
  Receipt Date: 20090721
  Transmission Date: 20110219
  Serious: No
  Sender: FDA-Public Use
  Company Number: US-WYE-H10247709

PATIENT
  Sex: Female

DRUGS (4)
  1. PRISTIQ [Suspect]
     Indication: DEPRESSION
     Route: 048
     Dates: start: 20090701
  2. LIALDA [Concomitant]
     Indication: COLITIS
     Dosage: DOSE UNKNOWN
     Route: 065
  3. VICODIN [Concomitant]
     Indication: FIBROMYALGIA
     Dosage: DOSE UNKNOWN
     Route: 065
  4. NAPROSYN [Concomitant]
     Indication: ARTHRITIS
     Dosage: DOSE UNKNOWN
     Route: 065

REACTIONS (6)
  - COLITIS [None]
  - CONDITION AGGRAVATED [None]
  - INSOMNIA [None]
  - LIP DRY [None]
  - PYREXIA [None]
  - SOMNOLENCE [None]
